FAERS Safety Report 9915965 (Version 1)
Quarter: 2014Q1

REPORT INFORMATION
  Report Type: Spontaneous
  Country: US (occurrence: US)
  Receive Date: 20140221
  Receipt Date: 20140221
  Transmission Date: 20141002
  Serious: Yes (Other)
  Sender: FDA-Public Use
  Company Number: US-SA-2014SA020804

PATIENT
  Age: 60 Year
  Sex: Female

DRUGS (2)
  1. LANTUS SOLOSTAR [Suspect]
     Indication: TYPE 2 DIABETES MELLITUS
     Dosage: DOSE:27 UNIT(S)
     Route: 051
     Dates: start: 2007
  2. SOLOSTAR [Concomitant]
     Indication: TYPE 2 DIABETES MELLITUS
     Dates: start: 2007

REACTIONS (7)
  - Cerebrovascular accident [Unknown]
  - Hypokinesia [Unknown]
  - Gait disturbance [Unknown]
  - Fall [Unknown]
  - Asthenia [Unknown]
  - Arthropathy [Unknown]
  - Underdose [Unknown]
